FAERS Safety Report 6104084-4 (Version None)
Quarter: 2009Q1

REPORT INFORMATION
  Report Type: 
  Country: None (occurrence: None)
  Receive Date: 20090305
  Receipt Date: 20090223
  Transmission Date: 20090719
  Serious: Yes (Hospitalization, Other)
  Sender: FDA-Public Use
  Company Number: US-PFIZER INC-2008092263

PATIENT
  Age: 75 Year
  Sex: Female

DRUGS (1)
  1. DETROL LA [Suspect]

REACTIONS (8)
  - CARDIAC DISORDER [None]
  - DIARRHOEA [None]
  - DRUG INEFFECTIVE [None]
  - DRUG LEVEL INCREASED [None]
  - FALL [None]
  - FRUSTRATION [None]
  - JOINT INJURY [None]
  - VOMITING [None]
